FAERS Safety Report 9355651 (Version 1)
Quarter: 2013Q2

REPORT INFORMATION
  Report Type: Spontaneous
  Country: US (occurrence: None)
  Receive Date: 20130618
  Receipt Date: 20130618
  Transmission Date: 20140414
  Serious: Yes (Other)
  Sender: FDA-Public Use
  Company Number: None

PATIENT
  Age: 69 Year
  Sex: Female

DRUGS (1)
  1. ENOXAPARIN [Suspect]
     Indication: NEOPLASM MALIGNANT
     Route: 058
     Dates: start: 20130613, end: 20130617

REACTIONS (2)
  - Injection site pain [None]
  - Needle issue [None]
